FAERS Safety Report 6335008-2 (Version None)
Quarter: 2009Q3

REPORT INFORMATION
  Report Type: 
  Country: None (occurrence: None)
  Receive Date: 20090831
  Receipt Date: 20090818
  Transmission Date: 20100115
  Serious: Yes (Other)
  Sender: FDA-Public Use
  Company Number: US-PFIZER INC-2008058821

PATIENT
  Sex: Female
  Weight: 81.6 kg

DRUGS (10)
  1. CHANTIX [Suspect]
     Indication: SMOKING CESSATION THERAPY
     Dates: start: 20070101
  2. PULMICORT-100 [Concomitant]
  3. XOPENEX [Concomitant]
  4. KLOR-CON [Concomitant]
  5. FUROSEMIDE [Concomitant]
  6. ENALAPRIL MALEATE [Concomitant]
     Indication: BLOOD PRESSURE
  7. QVAR 40 [Concomitant]
  8. OXYGEN [Concomitant]
  9. ASPIRIN [Concomitant]
  10. TYLENOL (CAPLET) [Concomitant]

REACTIONS (12)
  - AGITATION [None]
  - ANGER [None]
  - ASTHENIA [None]
  - DYSPNOEA [None]
  - FALL [None]
  - FATIGUE [None]
  - INCREASED UPPER AIRWAY SECRETION [None]
  - INSOMNIA [None]
  - OEDEMA PERIPHERAL [None]
  - PALPITATIONS [None]
  - SYNCOPE [None]
  - VASODILATATION [None]
